FAERS Safety Report 8758820 (Version 2)
Quarter: 2012Q4

REPORT INFORMATION
  Report Type: Spontaneous
  Country: IN (occurrence: None)
  Receive Date: 20120814
  Receipt Date: 20120828
  Transmission Date: 20130627
  Serious: Yes (Hospitalization)
  Sender: FDA-Public Use
  Company Number: AUR-APL-2012-03418

PATIENT
  Age: 11 Month
  Sex: Male

DRUGS (1)
  1. AMLODIPINE (AMLODIPINE) [Suspect]
     Indication: DRUG USE FOR UNKNOWN INDICATION
     Dosage: 6 doses of 15 mg

REACTIONS (8)
  - Vomiting [None]
  - Lethargy [None]
  - Dyspnoea [None]
  - Shock [None]
  - Hyperglycaemia [None]
  - Peritoneal dialysis [None]
  - Wrong drug administered [None]
  - Toxicity to various agents [None]
